FAERS Safety Report 4435209-4 (Version None)
Quarter: 2004Q3

REPORT INFORMATION
  Report Type: 
  Country: None (occurrence: None)
  Receive Date: 20040827
  Receipt Date: 20040329
  Transmission Date: 20050211
  Serious: Yes (Hospitalization, Other)
  Sender: FDA-Public Use
  Company Number: FR-BRISTOL-MYERS SQUIBB COMPANY-12546321

PATIENT
  Age: 40 Year
  Sex: Male

DRUGS (3)
  1. VIDEX EC [Suspect]
     Route: 048
     Dates: start: 20031114, end: 20031215
  2. ZIAGEN [Suspect]
     Route: 048
     Dates: start: 20031114, end: 20031215
  3. VIRACEPT [Concomitant]
     Dates: start: 20031114

REACTIONS (4)
  - CONJUNCTIVAL HAEMORRHAGE [None]
  - HEADACHE [None]
  - HEPATITIS [None]
  - JAUNDICE [None]
